FAERS Safety Report 6684773-3 (Version None)
Quarter: 2010Q2

REPORT INFORMATION
  Report Type: 
  Country: None (occurrence: None)
  Receive Date: 20100416
  Receipt Date: 20100407
  Transmission Date: 20101027
  Serious: Yes (Hospitalization)
  Sender: FDA-Public Use
  Company Number: CA-WATSON-2010-04897

PATIENT

DRUGS (1)
  1. FENTANYL CITRATE [Suspect]
     Indication: ANAESTHESIA
     Dosage: UNK

REACTIONS (1)
  - PNEUMOTHORAX [None]
